FAERS Safety Report 8605822-9 (Version None)
Quarter: 2012Q3

REPORT INFORMATION
  Report Type: 
  Country: None (occurrence: None)
  Receive Date: 20120820
  Receipt Date: 20120813
  Transmission Date: 20120928
  Serious: Yes (Hospitalization)
  Sender: FDA-Public Use
  Company Number: US-GLAXOSMITHKLINE-A0989590A

PATIENT
  Age: 40 Year
  Sex: Male

DRUGS (28)
  1. LEVSIN [Concomitant]
     Dates: start: 20120408
  2. PHENERGAN HCL [Concomitant]
     Dates: start: 20110831
  3. ATIVAN [Concomitant]
  4. ONDANSETRON [Concomitant]
  5. PROMETHAZINE [Concomitant]
  6. PRILOSEC [Concomitant]
  7. SENOKOT [Concomitant]
     Dates: start: 20120301
  8. ATIVAN [Concomitant]
     Dates: start: 20120320
  9. ZOFRAN [Concomitant]
     Dates: start: 20110831
  10. HYDROCORTISONE [Concomitant]
     Dates: start: 20120401
  11. IMODIUM [Concomitant]
     Dates: start: 20120309
  12. DEXTROSE 5% [Concomitant]
  13. VALIUM [Concomitant]
     Dates: start: 20120604
  14. TAMSULOSIN HCL [Concomitant]
     Dates: start: 20110101
  15. HYDROMORPHONE HYDROCHLORIDE [Concomitant]
  16. CYMBALTA [Concomitant]
     Dates: start: 20110831
  17. HYDROCODONE BITARTRATE + ACETAMINOPHEN [Concomitant]
  18. SYNTHROID [Concomitant]
     Dates: start: 20110701
  19. PROTONIX [Concomitant]
     Dates: start: 20110914
  20. LISINOPRIL [Concomitant]
     Dates: start: 20120403
  21. PAZOPANIB [Suspect]
     Indication: METASTATIC RENAL CELL CARCINOMA
     Dosage: 800MG PER DAY
     Route: 048
     Dates: start: 20120717
  22. INVESTIGATIONAL DRUG [Suspect]
     Indication: METASTATIC RENAL CELL CARCINOMA
  23. MIRALAX [Concomitant]
     Dates: start: 20120225
  24. BENADRYL [Concomitant]
     Dates: start: 20120419
  25. DIATRIZOATE MEGLUMINE [Concomitant]
  26. DOCUSATE SODIUM [Concomitant]
  27. SENNA [Concomitant]
  28. IBUPROFEN [Concomitant]
     Dates: start: 20120313

REACTIONS (3)
  - ORTHOSTATIC HYPOTENSION [None]
  - FATIGUE [None]
  - ARTHRALGIA [None]
